FAERS Safety Report 20890613 (Version 1)
Quarter: 2022Q2

REPORT INFORMATION
  Report Type: Report from Study
  Country: RU (occurrence: RU)
  Receive Date: 20220530
  Receipt Date: 20220530
  Transmission Date: 20220721
  Serious: Yes (Hospitalization, Other)
  Sender: FDA-Public Use
  Company Number: RU-CELGENE-RUS-20200503398

PATIENT
  Sex: Male
  Weight: 64 kg

DRUGS (18)
  1. OZANIMOD [Suspect]
     Active Substance: OZANIMOD
     Indication: Colitis ulcerative
     Dosage: 1 MILLIGRAM
     Route: 048
     Dates: start: 20191226
  2. OZANIMOD [Suspect]
     Active Substance: OZANIMOD
     Dosage: FREQUENCY TEXT: NOT PROVIDED
     Route: 048
     Dates: start: 20191226, end: 20200130
  3. OZANIMOD [Suspect]
     Active Substance: OZANIMOD
     Dosage: FREQUENCY TEXT: NOT PROVIDED
     Route: 048
     Dates: start: 20200130, end: 20200316
  4. OZANIMOD [Suspect]
     Active Substance: OZANIMOD
     Dosage: FREQUENCY TEXT: NOT PROVIDED
     Route: 048
     Dates: start: 20200316, end: 20200409
  5. OZANIMOD [Suspect]
     Active Substance: OZANIMOD
     Dosage: FREQUENCY TEXT: NOT PROVIDED
     Route: 048
     Dates: start: 20200409
  6. OZANIMOD [Suspect]
     Active Substance: OZANIMOD
     Dosage: FREQUENCY TEXT: NOT PROVIDED
     Route: 048
     Dates: start: 20200618, end: 20200820
  7. OZANIMOD [Suspect]
     Active Substance: OZANIMOD
     Dosage: FREQUENCY TEXT: NOT PROVIDED
     Route: 048
     Dates: start: 20200820, end: 20201113
  8. OZANIMOD [Suspect]
     Active Substance: OZANIMOD
     Dosage: FREQUENCY TEXT: NOT PROVIDED
     Route: 048
     Dates: start: 20201113, end: 20210204
  9. OZANIMOD [Suspect]
     Active Substance: OZANIMOD
     Dosage: FREQUENCY TEXT: NOT PROVIDED
     Route: 048
     Dates: start: 20210204, end: 20210422
  10. OZANIMOD [Suspect]
     Active Substance: OZANIMOD
     Dosage: FREQUENCY TEXT: NOT PROVIDED
     Route: 048
     Dates: start: 20210422, end: 20210715
  11. OZANIMOD [Suspect]
     Active Substance: OZANIMOD
     Dosage: FREQUENCY TEXT: NOT PROVIDED
     Route: 048
     Dates: start: 20210715, end: 20210819
  12. OZANIMOD [Suspect]
     Active Substance: OZANIMOD
     Dosage: FREQUENCY TEXT: NOT PROVIDED
     Route: 048
     Dates: start: 20210819
  13. MESALAMINE [Concomitant]
     Active Substance: MESALAMINE
     Indication: Colitis ulcerative
     Dosage: 3000 MILLIGRAM
     Route: 048
     Dates: start: 20181109
  14. ACETAMINOPHEN [Concomitant]
     Active Substance: ACETAMINOPHEN
     Indication: Pyrexia
     Dosage: FREQUENCY TEXT: NOT PROVIDED
     Route: 065
  15. POLYETHYLENE GLYCOLS [Concomitant]
     Active Substance: POLYETHYLENE GLYCOLS
     Indication: Endoscopy
     Dosage: FREQUENCY TEXT: ONCE
     Route: 048
     Dates: start: 20201112, end: 20201112
  16. KETAROL [Concomitant]
     Indication: Endoscopy
     Dosage: FREQUENCY TEXT: ONCE
     Route: 042
     Dates: start: 20201113, end: 20201113
  17. Etamzilat [Concomitant]
     Indication: Premedication
     Dosage: FREQUENCY TEXT: ONCE
     Route: 042
     Dates: start: 20201113, end: 20201113
  18. PROPOFOL [Concomitant]
     Active Substance: PROPOFOL
     Indication: Anaesthesia
     Dosage: FREQUENCY TEXT: ONCE
     Route: 042
     Dates: start: 20201113, end: 20201113

REACTIONS (2)
  - Upper respiratory tract infection [Recovered/Resolved]
  - Pneumonia [Recovered/Resolved]

NARRATIVE: CASE EVENT DATE: 20200505
